FAERS Safety Report 22128918 (Version 3)
Quarter: 2023Q2

REPORT INFORMATION
  Report Type: Spontaneous
  Country: US (occurrence: US)
  Receive Date: 20230323
  Receipt Date: 20230608
  Transmission Date: 20230722
  Serious: No
  Sender: FDA-Public Use
  Company Number: US-SA-SAC20230317001426

PATIENT
  Age: 56 Year
  Sex: Female

DRUGS (3)
  1. CERDELGA [Suspect]
     Active Substance: ELIGLUSTAT
     Indication: Gaucher^s disease
     Dosage: 1 DF, QD
     Route: 048
     Dates: start: 20221208, end: 20221218
  2. CERDELGA [Suspect]
     Active Substance: ELIGLUSTAT
     Dosage: 1 DF, BID
     Route: 048
     Dates: start: 202212
  3. TERBINAFINE [Concomitant]
     Active Substance: TERBINAFINE
     Dosage: UNK

REACTIONS (5)
  - Chest pain [Unknown]
  - Gaucher^s disease [Unknown]
  - Fatigue [Unknown]
  - Condition aggravated [Unknown]
  - Surgery [Unknown]

NARRATIVE: CASE EVENT DATE: 20230228
